FAERS Safety Report 9827515 (Version 1)
Quarter: 2014Q1

REPORT INFORMATION
  Report Type: Spontaneous
  Country: US (occurrence: US)
  Receive Date: 20140117
  Receipt Date: 20140117
  Transmission Date: 20141002
  Serious: Yes (Hospitalization)
  Sender: FDA-Public Use
  Company Number: US-BAYER-2014-006644

PATIENT
  Age: 30 Year
  Sex: Female
  Weight: 49.89 kg

DRUGS (2)
  1. YASMIN [Suspect]
  2. VICODIN [Concomitant]

REACTIONS (2)
  - Pulmonary embolism [Recovered/Resolved]
  - Pelvic venous thrombosis [None]
